FAERS Safety Report 6674833-5 (Version None)
Quarter: 2010Q2

REPORT INFORMATION
  Report Type: 
  Country: None (occurrence: None)
  Receive Date: 20100409
  Receipt Date: 20100327
  Transmission Date: 20101027
  Serious: Yes (Other)
  Sender: FDA-Public Use
  Company Number: BR-PFIZER INC-2010034092

PATIENT
  Sex: Male

DRUGS (4)
  1. VIAGRA [Suspect]
     Indication: ERECTILE DYSFUNCTION
     Dosage: 25 MG, DAILY
     Route: 048
  2. HELLEVA [Suspect]
  3. ACETYLCYSTEINE [Suspect]
  4. TARGIFOR [Suspect]

REACTIONS (1)
  - ANAEMIA [None]
